FAERS Safety Report 13824845 (Version 2)
Quarter: 2018Q1

REPORT INFORMATION
  Report Type: Spontaneous
  Country: US (occurrence: US)
  Receive Date: 20170802
  Receipt Date: 20180309
  Transmission Date: 20180508
  Serious: Yes (Hospitalization, Other)
  Sender: FDA-Public Use
  Company Number: US-COVIS PHARMA B.V.-2017COV00128

PATIENT
  Age: 70 Year
  Sex: Female
  Weight: 82.5 kg

DRUGS (10)
  1. PRILOSEC [Suspect]
     Active Substance: OMEPRAZOLE MAGNESIUM
     Dosage: UNK
     Route: 048
     Dates: start: 20140224
  2. IMDUR [Suspect]
     Active Substance: ISOSORBIDE MONONITRATE
     Indication: HYPERTENSION
     Dosage: 30 MG, 1X/DAY
     Route: 048
     Dates: start: 20170430, end: 20170503
  3. CARDURA [Concomitant]
     Active Substance: DOXAZOSIN MESYLATE
     Dosage: UNK
     Dates: start: 20160602
  4. NOVOLOG [Concomitant]
     Active Substance: INSULIN ASPART
     Dosage: UNK
     Dates: start: 20170113
  5. QGE031 [Suspect]
     Active Substance: INVESTIGATIONAL PRODUCT
     Indication: CHRONIC SPONTANEOUS URTICARIA
     Dosage: 2 ML, UNK
     Route: 058
     Dates: start: 20170410, end: 20170705
  6. FOSAMAX [Concomitant]
     Active Substance: ALENDRONATE SODIUM
     Dosage: UNK
     Dates: start: 20160121
  7. LANTUS [Concomitant]
     Active Substance: INSULIN GLARGINE
     Dosage: UNK
     Dates: start: 20170113
  8. IMDUR [Suspect]
     Active Substance: ISOSORBIDE MONONITRATE
     Dosage: 30 MG, 1X/DAY
     Route: 048
     Dates: start: 20170503
  9. BENICAR [Concomitant]
     Active Substance: OLMESARTAN MEDOXOMIL
     Dosage: UNK
     Dates: start: 20160623
  10. NORVASC [Concomitant]
     Active Substance: AMLODIPINE BESYLATE
     Dosage: UNK
     Dates: start: 20110221

REACTIONS (13)
  - Syncope [Recovered/Resolved]
  - Pancreatic neoplasm [Unknown]
  - Cystitis [Unknown]
  - Angina pectoris [Recovered/Resolved]
  - Chronic spontaneous urticaria [Unknown]
  - Gastrointestinal wall thickening [Unknown]
  - Blood pressure decreased [Unknown]
  - Tachycardia [Unknown]
  - Presyncope [Unknown]
  - Osteoporosis [Unknown]
  - Sinus bradycardia [Unknown]
  - Sinus tachycardia [Unknown]
  - Spinal osteoarthritis [Unknown]

NARRATIVE: CASE EVENT DATE: 20170410
